FAERS Safety Report 5117844-3 (Version None)
Quarter: 2006Q3

REPORT INFORMATION
  Report Type: 
  Country: None (occurrence: None)
  Receive Date: 20060929
  Receipt Date: 20060913
  Transmission Date: 20061208
  Serious: Yes (Other)
  Sender: FDA-Public Use
  Company Number: JP-SANOFI-SYNTHELABO-A01200607726

PATIENT
  Sex: Male

DRUGS (3)
  1. MILRILA [Suspect]
     Indication: CARDIAC FAILURE
     Dosage: 18 ML/HOUR
     Route: 042
     Dates: start: 20060816, end: 20060816
  2. MILRILA [Suspect]
     Route: 042
     Dates: start: 20060816, end: 20060816
  3. MILRILA [Suspect]
     Route: 042
     Dates: start: 20060816, end: 20060816

REACTIONS (7)
  - BLOOD PRESSURE INCREASED [None]
  - CARDIAC FAILURE [None]
  - COLD SWEAT [None]
  - CONDITION AGGRAVATED [None]
  - DRUG EFFECT DECREASED [None]
  - HEART RATE INCREASED [None]
  - WHEEZING [None]
